FAERS Safety Report 5239306-5 (Version None)
Quarter: 2007Q1

REPORT INFORMATION
  Report Type: 
  Country: None (occurrence: None)
  Receive Date: 20070216
  Receipt Date: 20070205
  Transmission Date: 20070707
  Serious: Yes (Other)
  Sender: FDA-Public Use
  Company Number: US-JNJFOC-20070201221

PATIENT
  Sex: Female

DRUGS (2)
  1. REMICADE [Suspect]
     Indication: CROHN'S DISEASE
  2. 6-MP [Concomitant]
     Indication: CROHN'S DISEASE

REACTIONS (1)
  - NON-SMALL CELL LUNG CANCER RECURRENT [None]
